FAERS Safety Report 22820756 (Version 2)
Quarter: 2023Q4

REPORT INFORMATION
  Report Type: Spontaneous
  Country: CN (occurrence: CN)
  Receive Date: 20230814
  Receipt Date: 20231006
  Transmission Date: 20240109
  Serious: Yes (Life-Threatening, Hospitalization)
  Sender: FDA-Public Use
  Company Number: CN-BAYER-2023A114098

PATIENT
  Age: 37 Year
  Sex: Female

DRUGS (1)
  1. ULTRAVIST [Suspect]
     Active Substance: IOPROMIDE
     Indication: Breast scan
     Dosage: 100 ML (76.89G), ONCE
     Route: 042
     Dates: start: 20230811, end: 20230811

REACTIONS (4)
  - Contrast media allergy [None]
  - Dyspnoea [None]
  - Laryngeal oedema [None]
  - Mydriasis [None]

NARRATIVE: CASE EVENT DATE: 20230811
